FAERS Safety Report 20202916 (Version 2)
Quarter: 2022Q1

REPORT INFORMATION
  Report Type: Spontaneous
  Country: PT (occurrence: PT)
  Receive Date: 20211218
  Receipt Date: 20220103
  Transmission Date: 20220424
  Serious: Yes (Other)
  Sender: FDA-Public Use
  Company Number: PT-ORGANON-2102PRT002173

PATIENT
  Age: 57 Year
  Sex: Female
  Weight: 156 kg

DRUGS (19)
  1. CLOPIDOGREL BISULFATE [Suspect]
     Active Substance: CLOPIDOGREL BISULFATE
     Indication: Prophylaxis
     Dosage: 75 MILLIGRAM, ONCE A DAY (AT DINNER)
     Route: 048
     Dates: start: 202010
  2. ETORICOXIB [Suspect]
     Active Substance: ETORICOXIB
     Indication: Analgesic intervention supportive therapy
     Dosage: 90 MILLIGRAM, ONCE A DAY (1 TABLET AT LUNCH)
     Route: 048
     Dates: start: 20210123, end: 20210128
  3. FLUOXETINE [Concomitant]
     Active Substance: FLUOXETINE HYDROCHLORIDE
     Indication: Product used for unknown indication
     Dosage: 120 MILLIGRAM, ONCE A DAY (60 MILLIGRAM, 2 TABLETS IN THE MORNING AND 1 TABLET AT LUNCH)
     Route: 048
  4. FLUOXETINE [Concomitant]
     Active Substance: FLUOXETINE HYDROCHLORIDE
     Indication: Depression
     Dosage: 3 DOSAGE FORM, ONCE A DAY (3 TABLETS DAILY (2 IN THE MORNING AND 1 AT LUNCH))
     Route: 048
  5. ZOLEPTIL [Concomitant]
     Indication: Product used for unknown indication
     Dosage: 50 MILLIGRAM, ONCE A DAY (25 MILLIGRAM, DAY, 2 TABLETS AT BEDTIME)
     Route: 048
  6. ZOLEPTIL [Concomitant]
     Indication: Psychotic disorder
     Dosage: UNK (1 TABLET AND A THIRD DAILY; STARTED A LONG TIME AGO)
     Route: 048
  7. PANTOPRAZOLE [Concomitant]
     Active Substance: PANTOPRAZOLE
     Indication: Product used for unknown indication
     Dosage: 1 DOSAGE FORM, ONCE A DAY
     Route: 065
  8. PANTOPRAZOLE [Concomitant]
     Active Substance: PANTOPRAZOLE
     Indication: Prophylaxis
     Dosage: 1 DOSAGE FORM, ONCE A DAY (BEFORE BREAKFAST)
     Route: 048
  9. BUPROPION [Concomitant]
     Active Substance: BUPROPION
     Indication: Depression
     Dosage: 1 DOSAGE FORM, ONCE A DAY (1 TABLET DAILY ; STARTED A LONG TIME AGO)
     Route: 048
  10. BUPROPION [Concomitant]
     Active Substance: BUPROPION
     Indication: Product used for unknown indication
     Dosage: 30 MILLIGRAM
     Route: 048
  11. DOMPERIDONE [Concomitant]
     Active Substance: DOMPERIDONE
     Indication: Product used for unknown indication
     Dosage: 10 MILLIGRAM, ONCE A DAY (1 TABLET, DAY 20 MINUTES BEFORE BREAKFAST)
     Route: 048
  12. DOMPERIDONE [Concomitant]
     Active Substance: DOMPERIDONE
     Indication: Flatulence
     Dosage: 1 DOSAGE FORM, ONCE A DAY (1 TABLET DAILY 20 MIN BEFORE BREAKFAST; STARTED A LONG TIME AGO)
     Route: 048
  13. TRAZODONE HYDROCHLORIDE [Concomitant]
     Active Substance: TRAZODONE HYDROCHLORIDE
     Indication: Product used for unknown indication
     Dosage: 200 MILLIGRAM, ONCE A DAY (1 TABLET AND 1 THIRD TABLET)
     Route: 048
  14. TRAZODONE HYDROCHLORIDE [Concomitant]
     Active Substance: TRAZODONE HYDROCHLORIDE
     Indication: Depression
     Dosage: UNK (1 TABLET AND A THIRD DAILY; STARTED A LONG TIME AGO)
     Route: 048
  15. ASPIRIN [Concomitant]
     Active Substance: ASPIRIN
     Indication: Prophylaxis
     Dosage: 100 MILLIGRAM, ONCE A DAY (1 TABLET, DAY, AT LUNCH)
     Route: 048
  16. ASPIRIN [Concomitant]
     Active Substance: ASPIRIN
     Indication: Anticoagulant therapy
     Dosage: 1 DOSAGE FORM (1 TABLET DAILY AT LUNCH, STARTED A LONG TIME; ASPIRINA GR)
     Route: 048
  17. ALPRAZOLAM [Concomitant]
     Active Substance: ALPRAZOLAM
     Indication: Anxiety
     Dosage: 2 DOSAGE FORM, ONCE A DAY (2 TABLETS DAILY;STARTED A LONG TIME AGO)
     Route: 048
  18. ALPRAZOLAM [Concomitant]
     Active Substance: ALPRAZOLAM
     Indication: Product used for unknown indication
     Dosage: 2 MILLIGRAM, ONCE A DAY (2 TABLETS)
     Route: 048
  19. ASPIRIN [Concomitant]
     Active Substance: ASPIRIN
     Indication: Product used for unknown indication
     Dosage: UNK
     Route: 065

REACTIONS (13)
  - Fatigue [Not Recovered/Not Resolved]
  - Confusional state [Recovered/Resolved]
  - Heart rate increased [Recovered/Resolved]
  - Yellow skin [Recovered/Resolved]
  - Drug interaction [Recovered/Resolved]
  - Weight increased [Not Recovered/Not Resolved]
  - Purpura [Recovered/Resolved]
  - Hallucination [Recovered/Resolved]
  - Pigmentation disorder [Recovered/Resolved]
  - Swelling [Not Recovered/Not Resolved]
  - Dark circles under eyes [Recovered/Resolved]
  - Activated partial thromboplastin time prolonged [Recovered/Resolved]
  - Memory impairment [Recovered/Resolved]

NARRATIVE: CASE EVENT DATE: 20210101
